FAERS Safety Report 21577936 (Version 2)
Quarter: 2023Q1

REPORT INFORMATION
  Report Type: Spontaneous
  Country: US (occurrence: US)
  Receive Date: 20221110
  Receipt Date: 20230117
  Transmission Date: 20230417
  Serious: Yes (Other)
  Sender: FDA-Public Use
  Company Number: US-PFIZER INC-PV202200099707

PATIENT
  Age: 60 Year
  Sex: Male
  Weight: 147.39 kg

DRUGS (2)
  1. XELJANZ [Suspect]
     Active Substance: TOFACITINIB CITRATE
     Indication: Rheumatoid arthritis
     Dosage: 5 MG, 2X/DAY
  2. COVID-19 VACCINE [Concomitant]

REACTIONS (2)
  - Oral surgery [Unknown]
  - Pain in extremity [Not Recovered/Not Resolved]
